FAERS Safety Report 6105817-3 (Version None)
Quarter: 2009Q1

REPORT INFORMATION
  Report Type: 
  Country: None (occurrence: None)
  Receive Date: 20090306
  Receipt Date: 20090304
  Transmission Date: 20090719
  Serious: Yes (Life-Threatening, Other)
  Sender: FDA-Public Use
  Company Number: NL-JNJFOC-20090301144

PATIENT
  Sex: Male
  Weight: 92 kg

DRUGS (5)
  1. INFLIXIMAB, RECOMBINANT [Suspect]
     Route: 042
  2. INFLIXIMAB, RECOMBINANT [Suspect]
     Indication: RHEUMATOID ARTHRITIS
     Route: 042
  3. METHOTREXATE [Suspect]
     Indication: RHEUMATOID ARTHRITIS
  4. ACETAMINOPHEN [Concomitant]
     Indication: PAIN
  5. OMNIC [Concomitant]
     Indication: BLADDER DISORDER

REACTIONS (1)
  - CHRONIC MYELOMONOCYTIC LEUKAEMIA [None]
